FAERS Safety Report 9291767 (Version 3)
Quarter: 2013Q3

REPORT INFORMATION
  Report Type: Spontaneous
  Country: RU (occurrence: RU)
  Receive Date: 20130516
  Receipt Date: 20130918
  Transmission Date: 20140515
  Serious: Yes (Other)
  Sender: FDA-Public Use
  Company Number: RU-ROCHE-1224354

PATIENT
  Sex: Male
  Weight: 79 kg

DRUGS (4)
  1. ROACCUTANE [Suspect]
     Indication: ACNE
     Route: 048
     Dates: start: 20121109
  2. ROACCUTANE [Suspect]
     Route: 048
  3. ROACCUTANE [Suspect]
     Route: 048
  4. ROACCUTANE [Suspect]
     Route: 048

REACTIONS (3)
  - Haemangioma of spleen [Not Recovered/Not Resolved]
  - Blood cholesterol increased [Not Recovered/Not Resolved]
  - Low density lipoprotein increased [Not Recovered/Not Resolved]
